FAERS Safety Report 5670528-5 (Version None)
Quarter: 2008Q1

REPORT INFORMATION
  Report Type: 
  Country: None (occurrence: None)
  Receive Date: 20080318
  Receipt Date: 20080307
  Transmission Date: 20080703
  Serious: Yes (Hospitalization)
  Sender: FDA-Public Use
  Company Number: PHHY2008JP02322

PATIENT
  Age: 43 Year
  Sex: Female

DRUGS (1)
  1. RITALIN [Suspect]
     Indication: INCORRECT DOSE ADMINISTERED
     Route: 048

REACTIONS (5)
  - HALLUCINATION, AUDITORY [None]
  - INTENTIONAL OVERDOSE [None]
  - PERSECUTORY DELUSION [None]
  - PSYCHIATRIC SYMPTOM [None]
  - WRONG TECHNIQUE IN DRUG USAGE PROCESS [None]
